FAERS Safety Report 5301281-2 (Version None)
Quarter: 2007Q2

REPORT INFORMATION
  Report Type: 
  Country: None (occurrence: None)
  Receive Date: 20070418
  Receipt Date: 20070410
  Transmission Date: 20071010
  Serious: Yes (Other)
  Sender: FDA-Public Use
  Company Number: US-PFIZER INC-2007029045

PATIENT
  Sex: Male
  Weight: 113.4 kg

DRUGS (1)
  1. LYRICA [Suspect]
     Indication: NEUROPATHY PERIPHERAL
     Dates: start: 20070330, end: 20070101

REACTIONS (5)
  - ABASIA [None]
  - ASTHENIA [None]
  - DYSGRAPHIA [None]
  - NEUROPATHY PERIPHERAL [None]
  - SOMNOLENCE [None]
